FAERS Safety Report 22072910 (Version 2)
Quarter: 2023Q1

REPORT INFORMATION
  Report Type: Spontaneous
  Country: FR (occurrence: FR)
  Receive Date: 20230308
  Receipt Date: 20230326
  Transmission Date: 20230417
  Serious: Yes (Other)
  Sender: FDA-Public Use
  Company Number: FR-UCBSA-2023011749

PATIENT
  Age: 48 Year
  Sex: Female

DRUGS (8)
  1. BRIVIACT [Suspect]
     Active Substance: BRIVARACETAM
     Indication: Product used for unknown indication
     Dosage: 5 MILLIGRAM, 2X/DAY (BID)
     Dates: start: 202205
  2. BRIVIACT [Suspect]
     Active Substance: BRIVARACETAM
     Dosage: 23 MILLIGRAM, 2X/DAY (BID)
  3. BRIVIACT [Suspect]
     Active Substance: BRIVARACETAM
     Dosage: 50 MILLIGRAM, TWICE A DAY
  4. BRIVIACT [Suspect]
     Active Substance: BRIVARACETAM
     Dosage: 75 MILLIGRAM, 2X/DAY (BID)
  5. BRIVIACT [Suspect]
     Active Substance: BRIVARACETAM
     Dosage: 100 MILLIGRAM, 2X/DAY (BID)
  6. BRIVIACT [Suspect]
     Active Substance: BRIVARACETAM
     Dosage: 75 MORNING+50 EVENING
  7. KEPPRA [Suspect]
     Active Substance: LEVETIRACETAM
     Indication: Product used for unknown indication
     Dosage: UNK
  8. LAMICTAL [Concomitant]
     Active Substance: LAMOTRIGINE
     Indication: Product used for unknown indication
     Dosage: UNK

REACTIONS (9)
  - Loss of consciousness [Not Recovered/Not Resolved]
  - Decreased appetite [Recovered/Resolved]
  - Bone pain [Not Recovered/Not Resolved]
  - Dental caries [Not Recovered/Not Resolved]
  - Anxiety [Not Recovered/Not Resolved]
  - Eating disorder [Not Recovered/Not Resolved]
  - Insomnia [Unknown]
  - Pain in extremity [Unknown]
  - Hypoaesthesia [Unknown]
